FAERS Safety Report 10610555 (Version 2)
Quarter: 2014Q4

REPORT INFORMATION
  Report Type: Spontaneous
  Country: JP (occurrence: None)
  Receive Date: 20141124
  Receipt Date: 20141210
  Transmission Date: 20150529
  Serious: Yes (Other)
  Sender: FDA-Public Use
  Company Number: 2014MPI00821

PATIENT
  Age: 50 Year
  Sex: Male
  Weight: 61 kg

DRUGS (6)
  1. METFORMIN [Suspect]
     Active Substance: METFORMIN HYDROCHLORIDE
     Indication: TYPE 2 DIABETES MELLITUS
     Route: 048
     Dates: start: 20140731
  2. HIRUDOID (MUCOPOLYSACCHARIDE POLYSULFURIC ACID ESTER) OINTMENT, CREAM [Concomitant]
  3. ANTEBATE (BETAMETHASONE BUTYRATE PROPIONATE) OINTMENT, CREAM [Concomitant]
  4. LIPITOR [Concomitant]
     Active Substance: ATORVASTATIN CALCIUM
  5. ADCETRIS [Suspect]
     Active Substance: BRENTUXIMAB VEDOTIN
     Indication: ANAPLASTIC LARGE-CELL LYMPHOMA
     Route: 041
     Dates: start: 20140530
  6. GLACTIV (SITAGLIPTIN PHOSPHATE MONOHYDRATE) TABLET [Concomitant]

REACTIONS (5)
  - Malaise [None]
  - Diabetes mellitus [None]
  - Diarrhoea [None]
  - Gastrointestinal disorder [None]
  - Sepsis [None]

NARRATIVE: CASE EVENT DATE: 20140803
